FAERS Safety Report 4331657-1 (Version None)
Quarter: 2004Q2

REPORT INFORMATION
  Report Type: 
  Country: None (occurrence: None)
  Receive Date: 20040405
  Receipt Date: 20040326
  Transmission Date: 20050107
  Serious: Yes (Other)
  Sender: FDA-Public Use
  Company Number: PT-MERCK-0403PRT00001

PATIENT
  Age: 39 Year
  Sex: Female
  Weight: 111 kg

DRUGS (2)
  1. VIOXX [Suspect]
     Indication: OSTEOARTHRITIS
     Route: 048
     Dates: start: 20040305, end: 20040307
  2. TRAZODONE HYDROCHLORIDE [Concomitant]
     Indication: DEPRESSION
     Route: 048
     Dates: start: 20040305

REACTIONS (4)
  - DIZZINESS [None]
  - HYPERSENSITIVITY [None]
  - OEDEMA [None]
  - RASH [None]
